FAERS Safety Report 5007663-0 (Version None)
Quarter: 2006Q2

REPORT INFORMATION
  Report Type: 
  Country: None (occurrence: None)
  Receive Date: 20060522
  Receipt Date: 20060501
  Transmission Date: 20061013
  Serious: Yes (Other)
  Sender: FDA-Public Use
  Company Number: AU-AVENTIS-200614639GDDC

PATIENT
  Age: 22 Year
  Sex: Male

DRUGS (3)
  1. ARAVA [Suspect]
     Indication: ARTHRITIS
     Route: 048
     Dates: start: 20031010
  2. PREDNISOLONE [Concomitant]
     Indication: PSORIATIC ARTHROPATHY
     Route: 048
     Dates: start: 20010101
  3. CALCIUM FOLINATE [Concomitant]
     Indication: PSORIATIC ARTHROPATHY
     Route: 048
     Dates: start: 20010101

REACTIONS (1)
  - COLITIS ULCERATIVE [None]
